FAERS Safety Report 25117747 (Version 1)
Quarter: 2025Q1

REPORT INFORMATION
  Report Type: Spontaneous
  Country: IN (occurrence: US)
  Receive Date: 20250325
  Receipt Date: 20250325
  Transmission Date: 20250408
  Serious: Yes (Hospitalization)
  Sender: BAYER HEALTHCARE LLC
  Company Number: IN-BAYER-2025A035322

PATIENT
  Age: 71 Year
  Sex: Male
  Weight: 90.7 kg

DRUGS (9)
  1. ASPIRIN [Suspect]
     Active Substance: ASPIRIN
     Indication: Product used for unknown indication
     Route: 065
  2. IMETELSTAT [Suspect]
     Active Substance: IMETELSTAT
     Indication: Myelofibrosis
     Route: 042
     Dates: start: 20241023, end: 20250115
  3. IMETELSTAT [Suspect]
     Active Substance: IMETELSTAT
     Indication: Myelofibrosis
     Route: 042
     Dates: start: 20240216, end: 20240904
  4. RUXOLITINIB [Suspect]
     Active Substance: RUXOLITINIB
     Indication: Myelofibrosis
     Dosage: 20 MG, QD
     Route: 048
     Dates: start: 20230614
  5. ALLOPURINOL [Concomitant]
     Active Substance: ALLOPURINOL
     Dates: start: 20210622
  6. TAMSULOSIN HYDROCHLORIDE [Concomitant]
     Active Substance: TAMSULOSIN HYDROCHLORIDE
     Dates: start: 20230725
  7. NITROGLYCERIN [Concomitant]
     Active Substance: NITROGLYCERIN
     Dates: start: 20240802
  8. EZETIMIBE [Concomitant]
     Active Substance: EZETIMIBE
     Dates: start: 20240802
  9. METOPROLOL [Concomitant]
     Active Substance: METOPROLOL
     Dates: start: 20231020

REACTIONS (1)
  - Anaemia [Recovered/Resolved]

NARRATIVE: CASE EVENT DATE: 20240914
